FAERS Safety Report 4907920-X (Version None)
Quarter: 2006Q1

REPORT INFORMATION
  Report Type: 
  Country: None (occurrence: None)
  Receive Date: 20060208
  Receipt Date: 20060127
  Transmission Date: 20060701
  Serious: Yes (Hospitalization)
  Sender: FDA-Public Use
  Company Number: 200610116BFR

PATIENT
  Age: 34 Year
  Sex: Male
  Weight: 60 kg

DRUGS (4)
  1. NIFEDIPINE [Suspect]
     Dosage: 10 MG QD ORAL
     Route: 048
     Dates: start: 20050526, end: 20051109
  2. CORTANCYL [Concomitant]
  3. KALEORID [Concomitant]
  4. CACIT D3 [Concomitant]

REACTIONS (1)
  - SKIN ULCER [None]
